FAERS Safety Report 6269311-1 (Version None)
Quarter: 2009Q3

REPORT INFORMATION
  Report Type: 
  Country: None (occurrence: None)
  Receive Date: 20090715
  Receipt Date: 20090707
  Transmission Date: 20100115
  Serious: Yes (Other)
  Sender: FDA-Public Use
  Company Number: FR-GENENTECH-272670

PATIENT
  Sex: Female

DRUGS (4)
  1. NUTROPIN AQ [Suspect]
     Indication: GROWTH HORMONE DEFICIENCY
     Dosage: 7.78 MG, 1/WEEK
     Route: 058
     Dates: start: 20080612, end: 20081120
  2. LEVOTHYROXINE SODIUM [Concomitant]
     Indication: HYPOTHYROIDISM
     Dosage: 12 GTT, QD
     Route: 048
  3. HYDROCORTISONE [Concomitant]
     Indication: HYPOPITUITARISM
     Dosage: 10 MG, QD
     Route: 048
  4. MINIRIN [Concomitant]
     Indication: DIABETES INSIPIDUS
     Dosage: 0.3 MG, TID
     Route: 048

REACTIONS (1)
  - CRANIOPHARYNGIOMA [None]
